FAERS Safety Report 4484937-3 (Version None)
Quarter: 2004Q3

REPORT INFORMATION
  Report Type: 
  Country: None (occurrence: None)
  Receive Date: 20040921
  Receipt Date: 20030805
  Transmission Date: 20050211
  Serious: Yes (Hospitalization)
  Sender: FDA-Public Use
  Company Number: 163-20785-03080213 (0)

PATIENT
  Age: 60 Year
  Sex: Male

DRUGS (11)
  1. THALOMID [Suspect]
     Indication: MULTIPLE MYELOMA
     Dosage: 100 MG, DAILY, ORAL
     Route: 048
     Dates: start: 20020528, end: 20030414
  2. VELCADE [Suspect]
     Indication: MULTIPLE MYELOMA
     Dosage: 1 MG/M2, INTRAVENOUS
     Route: 042
     Dates: start: 20020502, end: 20030225
  3. PAXIL [Concomitant]
  4. ALLOPURINOL [Concomitant]
  5. SYNTHROID [Concomitant]
  6. CELEBREX [Concomitant]
  7. PREVACID [Concomitant]
  8. FAMVIR [Concomitant]
  9. MAGNESIUM (MAGNESIUM) [Concomitant]
  10. LIPITOR [Concomitant]
  11. AUGMENTIN '125' [Concomitant]

REACTIONS (8)
  - DYSPNOEA [None]
  - INTERVERTEBRAL DISC PROTRUSION [None]
  - MUSCULOSKELETAL DISCOMFORT [None]
  - PANCYTOPENIA [None]
  - PNEUMONIA [None]
  - PRODUCTIVE COUGH [None]
  - PYREXIA [None]
  - SINUS CONGESTION [None]
